FAERS Safety Report 9467615 (Version 1)
Quarter: 2013Q3

REPORT INFORMATION
  Report Type: Spontaneous
  Country: US (occurrence: None)
  Receive Date: 20130819
  Receipt Date: 20130819
  Transmission Date: 20140515
  Serious: Yes (Hospitalization, Other)
  Sender: FDA-Public Use
  Company Number: None

PATIENT
  Age: 39 Year
  Sex: 0
  Weight: 63.5 kg

DRUGS (1)
  1. MIRALAX 17 G DOW [Suspect]
     Indication: CONSTIPATION
     Dosage: ONCE DAILY  TAKEN BY MOUTH
     Route: 048
     Dates: start: 20110401, end: 20130815

REACTIONS (8)
  - Swelling face [None]
  - Lip swelling [None]
  - Local swelling [None]
  - Tic [None]
  - Abnormal behaviour [None]
  - Chills [None]
  - Dehydration [None]
  - Constipation [None]
